FAERS Safety Report 9099319 (Version 1)
Quarter: 2013Q1

REPORT INFORMATION
  Report Type: Spontaneous
  Country: US (occurrence: US)
  Receive Date: 20130214
  Receipt Date: 20130214
  Transmission Date: 20140127
  Serious: No
  Sender: FDA-Public Use
  Company Number: US-COVIDIEN/TYCO HEALTHCARE/MALLINCKRODT-T201204152

PATIENT
  Age: 88 None
  Sex: Male

DRUGS (2)
  1. FENTANYL TRANSDERMAL SYSTEM [Suspect]
     Indication: BACK PAIN
     Dosage: 25 UG/HR, 1 FTS Q 3 DAYS
     Route: 062
     Dates: start: 201209
  2. PERCOCET                           /00446701/ [Concomitant]
     Indication: PAIN
     Dosage: 5/325 MG; 6 TABLETS PER DAY

REACTIONS (2)
  - Inappropriate schedule of drug administration [Unknown]
  - Application site erythema [Recovering/Resolving]
